FAERS Safety Report 9400397 (Version 1)
Quarter: 2013Q3

REPORT INFORMATION
  Report Type: Spontaneous
  Country: MA (occurrence: MA)
  Receive Date: 20130715
  Receipt Date: 20130715
  Transmission Date: 20140515
  Serious: Yes (Other)
  Sender: FDA-Public Use
  Company Number: MA-WATSON-2013-11948

PATIENT
  Age: 45 Year
  Sex: Male
  Weight: 65 kg

DRUGS (5)
  1. LIDOCAINE HYDROCHLORIDE (WATSON LABORATORIES) [Suspect]
     Indication: GENERAL ANAESTHESIA
     Dosage: 4 PUFF, 5%
     Route: 061
  2. PROPOFOL [Concomitant]
     Indication: GENERAL ANAESTHESIA
     Dosage: UNK
     Route: 065
  3. FENTANYL [Concomitant]
     Indication: GENERAL ANAESTHESIA
     Dosage: UNK
     Route: 065
  4. VECURONIUM [Concomitant]
     Indication: GENERAL ANAESTHESIA
     Dosage: UNK
     Route: 065
  5. SEVOFLURANE [Concomitant]
     Indication: GENERAL ANAESTHESIA
     Dosage: UNK
     Route: 065

REACTIONS (1)
  - Unilateral bronchospasm [Recovered/Resolved]
